FAERS Safety Report 24354878 (Version 1)
Quarter: 2024Q3

REPORT INFORMATION
  Report Type: Other
  Country: US (occurrence: US)
  Receive Date: 20240923
  Receipt Date: 20240923
  Transmission Date: 20241017
  Serious: Yes (Hospitalization, Other)
  Sender: HLS THERAPEUTICS
  Company Number: US-HLS-202401178

PATIENT
  Age: 42 Year
  Sex: Female

DRUGS (16)
  1. CLOZAPINE [Suspect]
     Active Substance: CLOZAPINE
     Indication: Schizophrenia
     Route: 065
  2. DIAZEPAM [Concomitant]
     Active Substance: DIAZEPAM
     Indication: Product used for unknown indication
     Dosage: 5 MG EVERY 24 HOUR
     Route: 065
  3. RISPERIDONE [Concomitant]
     Active Substance: RISPERIDONE
     Indication: Product used for unknown indication
     Dosage: 4 MG ONCE DAILY
     Route: 065
  4. RISPERIDONE [Concomitant]
     Active Substance: RISPERIDONE
     Indication: Product used for unknown indication
     Dosage: 6 MG EVERY 24 HOUR
     Route: 065
  5. CLONAZEPAM [Concomitant]
     Active Substance: CLONAZEPAM
     Indication: Product used for unknown indication
     Dosage: 2 MG EVERY 12 HOUR
     Route: 065
  6. TRIHEXYPHENIDYL [Concomitant]
     Active Substance: TRIHEXYPHENIDYL
     Indication: Product used for unknown indication
     Dosage: 2 MG EVERY 24 HOUR
     Route: 065
  7. PALIPERIDONE [Concomitant]
     Active Substance: PALIPERIDONE
     Indication: Product used for unknown indication
     Dosage: 150 MG, IM, EVERY FOUR WEEKS
     Route: 030
  8. PROCYCLIDINE [Concomitant]
     Active Substance: PROCYCLIDINE
     Indication: Product used for unknown indication
     Dosage: 5 MG EVERY 24 HOUR
     Route: 065
  9. HALOPERIDOL [Concomitant]
     Active Substance: HALOPERIDOL
     Indication: Product used for unknown indication
     Dosage: 5 MG EVERY 12 HOUR
     Route: 065
  10. PROMETHAZINE [Concomitant]
     Active Substance: PROMETHAZINE HYDROCHLORIDE
     Indication: Product used for unknown indication
     Dosage: 25 MG EVERY EVENING
     Route: 048
  11. LORAZEPAM [Concomitant]
     Active Substance: LORAZEPAM
     Indication: Product used for unknown indication
     Dosage: 1 MG EVERY 24 HOUR
     Route: 048
  12. ZIPRASIDONE [Concomitant]
     Active Substance: ZIPRASIDONE
     Indication: Product used for unknown indication
     Dosage: 80 MG EVERY 12 HOUR
     Route: 030
  13. FLUPENTIXOL [Concomitant]
     Active Substance: FLUPENTIXOL
     Indication: Product used for unknown indication
     Dosage: 100 MG, IM, EVERY FOUR WEEKS
     Route: 030
  14. QUETIAPINE [Concomitant]
     Active Substance: QUETIAPINE
     Indication: Product used for unknown indication
     Dosage: 500 MG EVERY EVENING
     Route: 065
  15. ARIPIPRAZOLE [Concomitant]
     Active Substance: ARIPIPRAZOLE
     Indication: Product used for unknown indication
     Dosage: 15 MG EVERY 24 HOUR
     Route: 065
  16. TRIFLUOPERAZINE [Concomitant]
     Active Substance: TRIFLUOPERAZINE HYDROCHLORIDE
     Indication: Product used for unknown indication
     Route: 065

REACTIONS (17)
  - Aggression [Recovered/Resolved]
  - Hallucinations, mixed [Not Recovered/Not Resolved]
  - Tremor [Unknown]
  - Cogwheel rigidity [Unknown]
  - Speech disorder developmental [Unknown]
  - Persecutory delusion [Not Recovered/Not Resolved]
  - Defiant behaviour [Recovered/Resolved]
  - Polydipsia [Unknown]
  - Irritability [Recovering/Resolving]
  - Hyperphagia [Unknown]
  - Parathyroid tumour [Unknown]
  - Treatment noncompliance [Unknown]
  - Poverty of thought content [Unknown]
  - Psychomotor retardation [Unknown]
  - Psychotic symptom [Unknown]
  - Urinary incontinence [Unknown]
  - Patient elopement [Unknown]

NARRATIVE: CASE EVENT DATE: 20230101
